FAERS Safety Report 8217791-4 (Version None)
Quarter: 2012Q1

REPORT INFORMATION
  Report Type: 
  Country: None (occurrence: None)
  Receive Date: 20120319
  Receipt Date: 20120312
  Transmission Date: 20120608
  Serious: Yes (Hospitalization)
  Sender: FDA-Public Use
  Company Number: ES-JNJFOC-20120304891

PATIENT
  Sex: Male
  Weight: 80 kg

DRUGS (3)
  1. AKINETON [Concomitant]
     Indication: EXTRAPYRAMIDAL DISORDER
  2. RISPERIDONE [Concomitant]
     Indication: SCHIZOPHRENIA
     Route: 065
  3. PALIPERIDONE PALMITATE [Suspect]
     Indication: SCHIZOPHRENIA
     Route: 065
     Dates: start: 20120215

REACTIONS (1)
  - PSYCHOTIC DISORDER [None]
